FAERS Safety Report 9200017 (Version 12)
Quarter: 2015Q1

REPORT INFORMATION
  Report Type: Spontaneous
  Country: US (occurrence: US)
  Receive Date: 20130329
  Receipt Date: 20150324
  Transmission Date: 20150721
  Serious: Yes (Death, Hospitalization, Other)
  Sender: FDA-Public Use
  Company Number: US-GLAXOSMITHKLINE-A1017908A

PATIENT
  Age: 65 Year
  Sex: Female

DRUGS (8)
  1. FLOLAN [Suspect]
     Active Substance: EPOPROSTENOL SODIUM
     Dosage: 38 NG/KG/MIN
     Dates: start: 20021030, end: 201412
  2. FLOLAN [Suspect]
     Active Substance: EPOPROSTENOL SODIUM
     Dosage: UNK
     Dates: start: 20021029
  3. FLOLAN [Suspect]
     Active Substance: EPOPROSTENOL SODIUM
     Indication: COR PULMONALE CHRONIC
     Dosage: 34 NG/KG/MIN CONTINUOUSLY37 NG/KG/MIN, 1.5 MG VIAL STRENGTH, 30,000 NG/ML CONCENTRATION38 NG/KG[...]
     Route: 042
     Dates: start: 20021029
  4. FLOLAN [Suspect]
     Active Substance: EPOPROSTENOL SODIUM
     Dosage: UNK
     Dates: start: 20021029
  5. FLOLAN [Suspect]
     Active Substance: EPOPROSTENOL SODIUM
     Dosage: 38 NG/KG/MIN, 1.5 MG VIAL STRENGTH, 30,000 NG/ML CONCENTRATION, PUMP RATE: 91 ML/DAY
     Route: 042
     Dates: start: 20021030
  6. FLOLAN [Suspect]
     Active Substance: EPOPROSTENOL SODIUM
     Dosage: 38 NG/KG/MIN, 1.5 MG VIAL STRENGTH, 30,000 NG/ML CONCENTRATION
     Dates: start: 20021030
  7. FLOLAN [Suspect]
     Active Substance: EPOPROSTENOL SODIUM
     Indication: PULMONARY HYPERTENSION
     Dosage: UNK
     Dates: start: 20021029
  8. FLOLAN [Suspect]
     Active Substance: EPOPROSTENOL SODIUM
     Dosage: 38 NG/KG/MIN, 1.5 MG VIAL STRENGTH, 30,000 NG/ML CONCENTRATION
     Dates: start: 20021030

REACTIONS (22)
  - Ascites [Fatal]
  - Biliary cirrhosis [Fatal]
  - Headache [Unknown]
  - Pulmonary hypertension [Fatal]
  - Disease progression [Fatal]
  - Confusional state [Recovered/Resolved]
  - Hospice care [Unknown]
  - Condition aggravated [Unknown]
  - Chronic gastrointestinal bleeding [Recovering/Resolving]
  - Fluid retention [Unknown]
  - Dizziness [Unknown]
  - Therapy cessation [Recovered/Resolved]
  - Joint injury [Unknown]
  - Right ventricular failure [Fatal]
  - Fall [Unknown]
  - Diplopia [Recovering/Resolving]
  - Nasopharyngitis [Unknown]
  - Muscle tightness [Unknown]
  - Device connection issue [Recovered/Resolved]
  - Asthenia [Unknown]
  - Scleroderma [Fatal]
  - Dyspnoea [Recovered/Resolved]

NARRATIVE: CASE EVENT DATE: 2002
